FAERS Safety Report 5804509-5 (Version None)
Quarter: 2008Q3

REPORT INFORMATION
  Report Type: 
  Country: None (occurrence: None)
  Receive Date: 20080707
  Receipt Date: 20080627
  Transmission Date: 20090109
  Serious: Yes (Life-Threatening)
  Sender: FDA-Public Use
  Company Number: GXKR2008GB05981

PATIENT
  Age: 54 Year
  Sex: Male

DRUGS (3)
  1. CITALOPRAM HYDROBROMIDE [Suspect]
     Indication: DEPRESSION
     Dosage: 10 MG, QD, ORAL
     Route: 048
     Dates: start: 20080528, end: 20080607
  2. MIRTAZAPINE [Concomitant]
  3. OLANZAPINE [Concomitant]

REACTIONS (4)
  - CONVULSION [None]
  - HYPONATRAEMIA [None]
  - OVERDOSE [None]
  - RHABDOMYOLYSIS [None]
